FAERS Safety Report 22098301 (Version 2)
Quarter: 2023Q1

REPORT INFORMATION
  Report Type: Other
  Country: US (occurrence: US)
  Receive Date: 20230315
  Receipt Date: 20230327
  Transmission Date: 20230417
  Serious: Yes (Hospitalization)
  Sender: FDA-Public Use
  Company Number: US-DECIPHERA PHARMACEUTICALS LLC-2023US000175

PATIENT
  Sex: Male

DRUGS (1)
  1. QINLOCK [Suspect]
     Active Substance: RIPRETINIB
     Indication: Gastrointestinal stromal tumour
     Dosage: 150 MILLIGRAM, QD
     Route: 048
     Dates: start: 20210721

REACTIONS (11)
  - Pain [Unknown]
  - Renal disorder [Unknown]
  - Hypersensitivity [Unknown]
  - Cardiac disorder [Not Recovered/Not Resolved]
  - Large intestine infection [Recovering/Resolving]
  - Peripheral swelling [Unknown]
  - Pain [Unknown]
  - Blood uric acid abnormal [Unknown]
  - Pyrexia [Recovering/Resolving]
  - Vomiting [Recovering/Resolving]
  - Nausea [Recovering/Resolving]
